FAERS Safety Report 19513314 (Version 1)
Quarter: 2021Q3

REPORT INFORMATION
  Report Type: Spontaneous
  Country: GB (occurrence: GB)
  Receive Date: 20210709
  Receipt Date: 20210709
  Transmission Date: 20211014
  Serious: Yes (Hospitalization)
  Sender: FDA-Public Use
  Company Number: GB-MYLANLABS-2021M1035046

PATIENT
  Age: 76 Year
  Sex: Female
  Weight: 82 kg

DRUGS (9)
  1. CYCLIZINE [Concomitant]
     Active Substance: CYCLIZINE
     Dosage: 1 DOSAGE FORM, PRN (UP TO THREE TIMES DAILY)
     Dates: start: 20210312, end: 20210319
  2. CITALOPRAM [Concomitant]
     Active Substance: CITALOPRAM HYDROBROMIDE
     Indication: ANXIETY
     Dosage: 1 DOSAGE FORM, AM(IN THE MORNING)
     Dates: start: 20201201
  3. OMEPRAZOLE. [Concomitant]
     Active Substance: OMEPRAZOLE
     Indication: DYSPEPSIA
     Dosage: 1 DOSAGE FORM, QD
     Dates: start: 20210325
  4. CO?AMOXICLAVE [Concomitant]
     Active Substance: AMOXICILLIN\CLAVULANATE POTASSIUM
     Dosage: 1 DOSAGE FORM, TID
     Dates: start: 20210312, end: 20210319
  5. DONEPEZIL. [Suspect]
     Active Substance: DONEPEZIL
     Indication: MIXED DEMENTIA
     Dosage: 5 MILLIGRAM, QD
     Dates: start: 20210203
  6. CLOPIDOGREL [Concomitant]
     Active Substance: CLOPIDOGREL BISULFATE
     Dosage: 1 DOSAGE FORM, QD (TO REDUCE RISK OF HEART)
     Dates: start: 20200908
  7. AMLODIPINE [Concomitant]
     Active Substance: AMLODIPINE BESYLATE
     Indication: HYPERTENSION
     Dosage: 1 DOSAGE FORM, QD
     Dates: start: 20200908
  8. LAMOTRIGINE. [Concomitant]
     Active Substance: LAMOTRIGINE
     Dosage: 1 DOSAGE FORM, BID
     Dates: start: 20200908
  9. COCODAMOL [Concomitant]
     Active Substance: ACETAMINOPHEN\CODEINE PHOSPHATE
     Dosage: URGENT ? TAKE ONE OR TWO 4 TIMES/DAY
     Dates: start: 20210308, end: 20210309

REACTIONS (3)
  - Diarrhoea [Unknown]
  - Abdominal discomfort [Unknown]
  - Abdominal pain [Recovering/Resolving]

NARRATIVE: CASE EVENT DATE: 20210330
